FAERS Safety Report 6882312-5 (Version None)
Quarter: 2010Q3

REPORT INFORMATION
  Report Type: 
  Country: None (occurrence: None)
  Receive Date: 20100729
  Receipt Date: 20090819
  Transmission Date: 20110219
  Serious: No
  Sender: FDA-Public Use
  Company Number: US-MYLANLABS-2009S1014894

PATIENT
  Sex: Female

DRUGS (1)
  1. LEVOTHYROXINE SODIUM [Suspect]
     Indication: THYROID DISORDER
     Route: 048

REACTIONS (5)
  - FATIGUE [None]
  - MALAISE [None]
  - SOMNOLENCE [None]
  - SPEECH DISORDER [None]
  - THYROID FUNCTION TEST ABNORMAL [None]
